FAERS Safety Report 10349584 (Version 1)
Quarter: 2014Q3

REPORT INFORMATION
  Report Type: Spontaneous
  Country: US (occurrence: None)
  Receive Date: 20140728
  Receipt Date: 20140728
  Transmission Date: 20150326
  Serious: Yes (Other)
  Sender: FDA-Public Use
  Company Number: None

PATIENT
  Age: 09 Year
  Sex: Male
  Weight: 33.11 kg

DRUGS (1)
  1. METHYLPHENIDATE ER 36 MG [Suspect]
     Active Substance: METHYLPHENIDATE
     Indication: ATTENTION DEFICIT/HYPERACTIVITY DISORDER
     Dosage: 1 TAB
     Route: 048
     Dates: start: 20140311, end: 20140727

REACTIONS (8)
  - Headache [None]
  - Drug ineffective [None]
  - Product formulation issue [None]
  - Product quality issue [None]
  - Drug effect delayed [None]
  - Abdominal pain upper [None]
  - Product substitution issue [None]
  - Irritability [None]
